FAERS Safety Report 21441288 (Version 3)
Quarter: 2023Q1

REPORT INFORMATION
  Report Type: Spontaneous
  Country: US (occurrence: US)
  Receive Date: 20221011
  Receipt Date: 20230103
  Transmission Date: 20230418
  Serious: Yes (Other)
  Sender: FDA-Public Use
  Company Number: US-INCYTE CORPORATION-2022IN009732

PATIENT

DRUGS (5)
  1. JAKAFI [Interacting]
     Active Substance: RUXOLITINIB
     Indication: Myelofibrosis
     Dosage: 25 MILLIGRAM, BID
     Route: 048
     Dates: start: 20210514
  2. JAKAFI [Interacting]
     Active Substance: RUXOLITINIB
     Dosage: 25 MILLIGRAM, BID (WITH OR WITHOUT FOOD, AVOID GRAPEFRUIT PRODUCTS)
     Route: 048
     Dates: start: 20220224
  3. HYDROXYUREA [Interacting]
     Active Substance: HYDROXYUREA
     Indication: Product used for unknown indication
     Dosage: 500 MILLIGRAM
     Route: 065
  4. LIPITOR [Concomitant]
     Active Substance: ATORVASTATIN CALCIUM
     Indication: Product used for unknown indication
     Dosage: 20 MILLIGRAM
     Route: 065
  5. OMEPRAZOLE [Concomitant]
     Active Substance: OMEPRAZOLE
     Indication: Product used for unknown indication
     Dosage: 40 MILLIGRAM
     Route: 065

REACTIONS (4)
  - Squamous cell carcinoma of skin [Recovering/Resolving]
  - Fatigue [Recovering/Resolving]
  - Prescribed overdose [Unknown]
  - Drug interaction [Unknown]

NARRATIVE: CASE EVENT DATE: 20210514
